FAERS Safety Report 11635801 (Version 2)
Quarter: 2016Q2

REPORT INFORMATION
  Report Type: Spontaneous
  Country: US (occurrence: US)
  Receive Date: 20151016
  Receipt Date: 20160425
  Transmission Date: 20160815
  Serious: No
  Sender: FDA-Public Use
  Company Number: US-PFIZER INC-2015344252

PATIENT
  Age: 74 Year
  Sex: Female
  Weight: 58 kg

DRUGS (5)
  1. PREMARIN [Suspect]
     Active Substance: ESTROGENS, CONJUGATED
     Indication: HORMONE REPLACEMENT THERAPY
     Dosage: VARIOUS DOSAGES
     Route: 048
  2. CALCIUM [Concomitant]
     Active Substance: CALCIUM
     Dosage: UNK
  3. PREMARIN [Suspect]
     Active Substance: ESTROGENS, CONJUGATED
     Dosage: 0.925, 1X/DAY
     Route: 048
     Dates: end: 20151011
  4. MAGNESIUM [Concomitant]
     Active Substance: MAGNESIUM
     Dosage: UNK
  5. B12 COMPLEX [Concomitant]
     Dosage: UNK

REACTIONS (10)
  - Bile output increased [Unknown]
  - Depression [Recovered/Resolved]
  - Breast cyst [Unknown]
  - Gastrooesophageal reflux disease [Unknown]
  - Liver disorder [Unknown]
  - Hepatic cyst [Unknown]
  - Disturbance in attention [Unknown]
  - Anxiety [Recovered/Resolved]
  - Asthenia [Unknown]
  - Hepatic pain [Unknown]
